FAERS Safety Report 21700087 (Version 1)
Quarter: 2022Q4

REPORT INFORMATION
  Report Type: Spontaneous
  Country: US (occurrence: US)
  Receive Date: 20221208
  Receipt Date: 20221208
  Transmission Date: 20230113
  Serious: Yes (Other)
  Sender: FDA-Public Use
  Company Number: US-VIIV HEALTHCARE LIMITED-US2022AMR180716

PATIENT

DRUGS (5)
  1. CABENUVA [Suspect]
     Active Substance: CABOTEGRAVIR\RILPIVIRINE
     Indication: Product used for unknown indication
     Dosage: UNK, 1ST DOSE
     Dates: start: 202204
  2. CABENUVA [Suspect]
     Active Substance: CABOTEGRAVIR\RILPIVIRINE
     Dosage: UNK, 2 ND DOSE
  3. CABENUVA [Suspect]
     Active Substance: CABOTEGRAVIR\RILPIVIRINE
     Dosage: UNK, 3RD DOSE
  4. CABENUVA [Suspect]
     Active Substance: CABOTEGRAVIR\RILPIVIRINE
     Dosage: UNK, 4 TH DOSE
     Dates: start: 20220718
  5. SYMBIOCORT [Concomitant]
     Indication: Asthma
     Dosage: UNK

REACTIONS (3)
  - Loss of consciousness [Recovered/Resolved]
  - Seizure [Unknown]
  - Asthma [Unknown]

NARRATIVE: CASE EVENT DATE: 20220101
